FAERS Safety Report 5613019-X (Version None)
Quarter: 2008Q1

REPORT INFORMATION
  Report Type: 
  Country: None (occurrence: None)
  Receive Date: 20080204
  Receipt Date: 20080124
  Transmission Date: 20080703
  Serious: Yes (Hospitalization)
  Sender: FDA-Public Use
  Company Number: RO-PFIZER INC-2008007494

PATIENT
  Age: 81 Year
  Sex: Female

DRUGS (1)
  1. LATANOPROST [Suspect]
     Indication: INTRAOCULAR PRESSURE INCREASED
     Route: 061
     Dates: start: 20080101, end: 20080101

REACTIONS (4)
  - CONJUNCTIVAL OEDEMA [None]
  - CONJUNCTIVITIS ALLERGIC [None]
  - EYELID OEDEMA [None]
  - PRURITUS [None]
